FAERS Safety Report 8954820 (Version 2)
Quarter: 2013Q2

REPORT INFORMATION
  Report Type: Spontaneous
  Country: FR (occurrence: FR)
  Receive Date: 20121207
  Receipt Date: 20130528
  Transmission Date: 20140414
  Serious: Yes (Hospitalization)
  Sender: FDA-Public Use
  Company Number: FR-ASTRAZENECA-2012SE91042

PATIENT
  Age: 30748 Day
  Sex: Male
  Weight: 70 kg

DRUGS (7)
  1. CRESTOR [Suspect]
     Indication: BLOOD CHOLESTEROL ABNORMAL
     Route: 048
     Dates: start: 20120928, end: 20121020
  2. CRESTOR [Suspect]
     Indication: BLOOD CHOLESTEROL ABNORMAL
     Route: 048
  3. TRIATEC [Suspect]
     Indication: HYPERTENSION
     Route: 048
  4. RHYTMOL [Concomitant]
  5. PREVISCAN [Concomitant]
  6. OMEPRAZOLE [Concomitant]
  7. ANACIN [Concomitant]

REACTIONS (3)
  - Pharyngeal oedema [Recovered/Resolved]
  - Drug hypersensitivity [Recovered/Resolved]
  - Swollen tongue [Recovered/Resolved]
